FAERS Safety Report 4402898-X (Version None)
Quarter: 2004Q3

REPORT INFORMATION
  Report Type: 
  Country: None (occurrence: None)
  Receive Date: 20040716
  Receipt Date: 20040421
  Transmission Date: 20050211
  Serious: Yes (Hospitalization)
  Sender: FDA-Public Use
  Company Number: 2004027419

PATIENT
  Age: 72 Year
  Sex: Female
  Weight: 91.173 kg

DRUGS (3)
  1. SUDAFED 12 HOUR [Suspect]
     Indication: BRONCHITIS
     Dosage: ONCE, ORAL
     Route: 048
     Dates: start: 19970101, end: 19970101
  2. LISINOPRIL [Concomitant]
  3. DIGOXIN [Concomitant]

REACTIONS (2)
  - ATRIAL FIBRILLATION [None]
  - DYSPNOEA [None]
